FAERS Safety Report 15637124 (Version 2)
Quarter: 2019Q1

REPORT INFORMATION
  Report Type: Spontaneous
  Country: US (occurrence: US)
  Receive Date: 20181120
  Receipt Date: 20190113
  Transmission Date: 20190417
  Serious: Yes (Hospitalization, Other)
  Sender: FDA-Public Use
  Company Number: US-ROCHE-2213873

PATIENT
  Age: 61 Year
  Sex: Male
  Weight: 91.6 kg

DRUGS (20)
  1. CALCIUM ASCORBATE [Concomitant]
     Active Substance: CALCIUM ASCORBATE
     Dosage: TAKE BY MOUTH 2XDAILY
     Route: 048
  2. ONDASETRON [Concomitant]
     Active Substance: ONDANSETRON
     Dosage: 1TAB 30MINS BEFORE ORAL CHEMO AND 1 TAB EVERY 8HRS
     Route: 065
  3. VITAMIN A [Concomitant]
     Active Substance: VITAMIN A
     Dosage: TAKE 1 CAPSULE BY MOUTH DAILY
     Route: 048
  4. BIOTIN [Concomitant]
     Active Substance: BIOTIN
     Route: 048
  5. CHOLECALCIFEROL [Concomitant]
     Active Substance: CHOLECALCIFEROL
     Dosage: TAKE 1000IU BY MOUTH DAILY
     Route: 048
  6. TEMOZOLOMIDE. [Concomitant]
     Active Substance: TEMOZOLOMIDE
     Dosage: TAKE 165 MG BY MOUTH DAILY
     Route: 065
  7. DECADRON [Concomitant]
     Active Substance: DEXAMETHASONE
     Dosage: ONCE A DAY FOR 7 DAYS
     Route: 048
  8. DECADRON [Concomitant]
     Active Substance: DEXAMETHASONE
     Dosage: 2MG TOTAL WITH BREAKFAST; TAKE WITH FOOD
     Route: 048
  9. B COMPLEX VITAMIN [Concomitant]
     Dosage: TAKE BY MOUTH DAILY
     Route: 048
  10. D-MANNOSE [Concomitant]
     Dosage: TAKE BY MOUTH 2X DAILY
     Route: 048
  11. FAMOTIDINE. [Concomitant]
     Active Substance: FAMOTIDINE
     Dosage: TAKE 1 TAB BY MOUTH DAILY
     Route: 065
  12. OCREVUS [Suspect]
     Active Substance: OCRELIZUMAB
     Indication: SECONDARY PROGRESSIVE MULTIPLE SCLEROSIS
     Dosage: 2 X 300 MG; FIRST DOSE
     Route: 042
     Dates: start: 201707, end: 201806
  13. OCREVUS [Suspect]
     Active Substance: OCRELIZUMAB
     Dosage: SECOND DOSE
     Route: 042
     Dates: start: 2018
  14. CRANBERRY EXTRACT [Concomitant]
     Active Substance: CRANBERRY JUICE
     Dosage: TAKE BY MOUTH 2X DAILY
     Route: 048
  15. GABAPENTIN. [Concomitant]
     Active Substance: GABAPENTIN
     Dosage: TAKE 100 MG B Y MOUTH 3X DAILY WITH MEALS
     Route: 065
  16. THIAMINE HCL [Concomitant]
     Active Substance: THIAMINE HYDROCHLORIDE
     Route: 048
  17. BACLOFEN. [Concomitant]
     Active Substance: BACLOFEN
     Dosage: TAKE 40 MG BY MOUTH DAILY
     Route: 048
  18. CIPROFLOXACIN HCL [Concomitant]
     Active Substance: CIPROFLOXACIN HYDROCHLORIDE
     Dosage: TAKE 500 MG BY MOUTH 2X DAILY
     Route: 048
  19. DECADRON [Concomitant]
     Active Substance: DEXAMETHASONE
     Dosage: 2X A DAY FOR 7 DAYS
     Route: 048
  20. DECADRON [Concomitant]
     Active Substance: DEXAMETHASONE
     Dosage: HALF TABLET FOR 7 DAYS
     Route: 048

REACTIONS (5)
  - Glioblastoma [Not Recovered/Not Resolved]
  - Off label use [Unknown]
  - Intentional product use issue [Unknown]
  - Upper respiratory tract infection [Recovered/Resolved]
  - Urosepsis [Recovered/Resolved]

NARRATIVE: CASE EVENT DATE: 201806
